FAERS Safety Report 5229732-2 (Version None)
Quarter: 2007Q1

REPORT INFORMATION
  Report Type: 
  Country: None (occurrence: None)
  Receive Date: 20070206
  Receipt Date: 20070122
  Transmission Date: 20070707
  Serious: Yes (Other)
  Sender: FDA-Public Use
  Company Number: PHBS2007BR01333

PATIENT
  Age: 68 Year
  Sex: Female
  Weight: 64 kg

DRUGS (3)
  1. SOMALGIN [Concomitant]
     Dosage: 1 TABLET/DAY
     Route: 048
     Dates: start: 20010501
  2. ENALAPRIL MALEATE [Concomitant]
     Dosage: 1 TABLET/DAY
     Route: 048
     Dates: start: 20010501
  3. STARFORM [Suspect]
     Indication: DIABETES MELLITUS
     Dosage: 360/ 1500 MG/DAY
     Route: 048

REACTIONS (4)
  - CEREBROVASCULAR ACCIDENT [None]
  - HYPOAESTHESIA [None]
  - NERVOUSNESS [None]
  - PSYCHOMOTOR SKILLS IMPAIRED [None]
